FAERS Safety Report 8233484-1 (Version None)
Quarter: 2012Q1

REPORT INFORMATION
  Report Type: 
  Country: None (occurrence: None)
  Receive Date: 20120326
  Receipt Date: 20120312
  Transmission Date: 20120608
  Serious: Yes (Life-Threatening, Hospitalization)
  Sender: FDA-Public Use
  Company Number: DE-MYLANLABS-2012S1005394

PATIENT
  Age: 79 Year
  Sex: Female
  Weight: 80 kg

DRUGS (5)
  1. LISIDOC [Concomitant]
     Indication: HYPERTENSION
     Dosage: 1-0-0
     Route: 048
  2. MARCUMAR [Concomitant]
     Indication: THROMBOSIS PROPHYLAXIS
     Route: 048
     Dates: start: 20070101
  3. XIPAMID [Concomitant]
     Indication: HYPERTENSION
     Dosage: 1-0-0
     Route: 048
  4. FINASTERIDE [Suspect]
     Indication: BENIGN PROSTATIC HYPERPLASIA
     Dosage: 1-0-0
     Route: 048
     Dates: start: 20101101, end: 20110201
  5. TERAZOSIN HCL [Concomitant]
     Indication: BENIGN PROSTATIC HYPERPLASIA
     Dosage: 1-0-0
     Route: 048

REACTIONS (2)
  - THROMBOCYTOPENIA [None]
  - HAEMORRHAGIC DIATHESIS [None]
